FAERS Safety Report 4739327-2 (Version None)
Quarter: 2005Q3

REPORT INFORMATION
  Report Type: 
  Country: None (occurrence: None)
  Receive Date: 20050810
  Receipt Date: 20050121
  Transmission Date: 20060218
  Serious: No
  Sender: FDA-Public Use
  Company Number: US-GLAXOSMITHKLINE-A0541729A

PATIENT
  Sex: Female

DRUGS (3)
  1. PAROXETINE HCL [Suspect]
     Indication: POSTPARTUM DEPRESSION
     Dosage: 10MG PER DAY
     Route: 048
  2. MULTI-VITAMINS [Concomitant]
  3. CALCIUM SUPPLEMENT [Concomitant]

REACTIONS (4)
  - ABNORMAL DREAMS [None]
  - DIARRHOEA [None]
  - NIGHT SWEATS [None]
  - PALPITATIONS [None]
